FAERS Safety Report 7656852-5 (Version None)
Quarter: 2011Q3

REPORT INFORMATION
  Report Type: 
  Country: None (occurrence: None)
  Receive Date: 20110804
  Receipt Date: 20110722
  Transmission Date: 20111222
  Serious: Yes (Hospitalization)
  Sender: FDA-Public Use
  Company Number: NZ-SANOFI-AVENTIS-2011SA048211

PATIENT
  Age: 73 Year
  Sex: Male
  Weight: 98 kg

DRUGS (9)
  1. DRONEDARONE HCL [Suspect]
     Indication: ATRIAL FIBRILLATION
     Route: 048
     Dates: start: 20110627, end: 20110708
  2. INSULIN [Concomitant]
     Route: 065
  3. ASPIRIN [Concomitant]
     Route: 065
  4. CILAZAPRIL [Concomitant]
     Route: 065
  5. WARFARIN [Concomitant]
     Route: 065
  6. QUININE SULFATE [Concomitant]
     Route: 065
  7. ATORVASTATIN [Concomitant]
     Route: 065
  8. ALLOPURINOL [Concomitant]
     Route: 065
  9. FUROSEMIDE [Concomitant]
     Route: 065

REACTIONS (1)
  - CARDIAC FAILURE [None]
